FAERS Safety Report 8824565 (Version 2)
Quarter: 2012Q4

REPORT INFORMATION
  Report Type: 
  Country: JP (occurrence: JP)
  Receive Date: 20121004
  Receipt Date: 20121023
  Transmission Date: 20130627
  Serious: Yes (Hospitalization)
  Sender: FDA-Public Use
  Company Number: JP-BAYER-2012-103635

PATIENT
  Age: 63 Year
  Sex: Female

DRUGS (4)
  1. ACETYLSALICYLIC ACID({=100 MG) [Suspect]
     Indication: THROMBOSIS PROPHYLAXIS
     Route: 048
  2. AMLODIPINE BESILATE [Suspect]
     Indication: HYPERTENSION
     Route: 048
  3. DOXAZOSIN MESILATE [Suspect]
     Indication: HYPERTENSION
     Route: 048
  4. FAMOTIDINE [Suspect]
     Indication: THROMBOSIS PROPHYLAXIS

REACTIONS (1)
  - Tubulointerstitial nephritis [Recovering/Resolving]
